FAERS Safety Report 5694918-X (Version None)
Quarter: 2008Q2

REPORT INFORMATION
  Report Type: 
  Country: None (occurrence: None)
  Receive Date: 20080404
  Receipt Date: 20080327
  Transmission Date: 20081010
  Serious: Yes (Death, Hospitalization)
  Sender: FDA-Public Use
  Company Number: JP-BRISTOL-MYERS SQUIBB COMPANY-13965314

PATIENT
  Age: 66 Year
  Sex: Male

DRUGS (2)
  1. MITOMYCIN [Suspect]
     Indication: HEPATIC CANCER METASTATIC
     Dosage: FORM = INJECTION
     Route: 013
     Dates: start: 20050905, end: 20060616
  2. FARMORUBICIN [Suspect]
     Indication: HEPATIC CANCER METASTATIC
     Dosage: FORM = INJECTION
     Route: 013
     Dates: start: 20050905, end: 20060616

REACTIONS (2)
  - HEPATIC FAILURE [None]
  - HEPATIC NECROSIS [None]
